FAERS Safety Report 14781517 (Version 2)
Quarter: 2018Q4

REPORT INFORMATION
  Report Type: Spontaneous
  Country: FR (occurrence: FR)
  Receive Date: 20180420
  Receipt Date: 20181024
  Transmission Date: 20190204
  Serious: No
  Sender: FDA-Public Use
  Company Number: FR-MERCK KGAA-2046103

PATIENT
  Age: 44 Year
  Sex: Female

DRUGS (1)
  1. EUTHYROX [Suspect]
     Active Substance: LEVOTHYROXINE SODIUM
     Indication: POST PROCEDURAL HYPOTHYROIDISM
     Dates: start: 201704

REACTIONS (18)
  - Myalgia [None]
  - Fatigue [None]
  - Tri-iodothyronine decreased [Recovered/Resolved]
  - Diarrhoea [None]
  - Social avoidant behaviour [None]
  - Depersonalisation/derealisation disorder [None]
  - Impaired work ability [None]
  - Asthenia [None]
  - Insomnia [None]
  - Malaise [None]
  - Impaired driving ability [None]
  - Dysstasia [None]
  - Depression [None]
  - C-reactive protein increased [None]
  - Blood thyroid stimulating hormone increased [Recovered/Resolved]
  - Gait disturbance [None]
  - Loss of personal independence in daily activities [None]
  - Dizziness [None]

NARRATIVE: CASE EVENT DATE: 201705
